FAERS Safety Report 7153246-6 (Version None)
Quarter: 2010Q4

REPORT INFORMATION
  Report Type: 
  Country: None (occurrence: None)
  Receive Date: 20101209
  Receipt Date: 20101209
  Transmission Date: 20110411
  Serious: Yes (Life-Threatening, Disabling, Other)
  Sender: FDA-Public Use
  Company Number: None

PATIENT
  Sex: Male
  Weight: 87.0906 kg

DRUGS (1)
  1. INVEGA [Suspect]
     Indication: MENTAL DISORDER
     Dosage: DAILY ONE ORAL
     Route: 048
     Dates: start: 20101112

REACTIONS (8)
  - CARDIOVASCULAR DISORDER [None]
  - CONVULSION [None]
  - ELECTROCARDIOGRAM QT PROLONGED [None]
  - GASTROINTESTINAL DISORDER [None]
  - HYPERTENSION [None]
  - NEUROLEPTIC MALIGNANT SYNDROME [None]
  - PRIAPISM [None]
  - TARDIVE DYSKINESIA [None]
